FAERS Safety Report 5397494-4 (Version None)
Quarter: 2007Q3

REPORT INFORMATION
  Report Type: 
  Country: None (occurrence: None)
  Receive Date: 20070723
  Receipt Date: 20070723
  Transmission Date: 20080115
  Serious: Yes (Other)
  Sender: FDA-Public Use
  Company Number: None

PATIENT
  Age: 61 Year
  Sex: Male
  Weight: 92.9874 kg

DRUGS (1)
  1. ALDARA [Suspect]
     Indication: ACTINIC KERATOSIS
     Dosage: APPLY SPARINGLY TWICE EACH DAY CUTANEOUS
     Route: 003
     Dates: start: 20070627, end: 20070714

REACTIONS (4)
  - DRUG PRESCRIBING ERROR [None]
  - MEDICATION ERROR [None]
  - SKIN DISORDER [None]
  - SKIN HAEMORRHAGE [None]
